FAERS Safety Report 12297049 (Version 1)
Quarter: 2016Q2

REPORT INFORMATION
  Report Type: Spontaneous
  Country: US (occurrence: US)
  Receive Date: 20160422
  Receipt Date: 20160422
  Transmission Date: 20160815
  Serious: No
  Sender: FDA-Public Use
  Company Number: US-ASTRAZENECA-2016SE39207

PATIENT
  Sex: Female

DRUGS (1)
  1. BRILINTA [Suspect]
     Active Substance: TICAGRELOR
     Indication: ACUTE CORONARY SYNDROME
     Route: 048

REACTIONS (7)
  - Epistaxis [Unknown]
  - Contusion [Unknown]
  - Intentional product misuse [Unknown]
  - Chest discomfort [Unknown]
  - Weight decreased [Unknown]
  - Haemorrhage [Unknown]
  - Asthenia [Unknown]
